FAERS Safety Report 14608516 (Version 2)
Quarter: 2018Q3

REPORT INFORMATION
  Report Type: Spontaneous
  Country: US (occurrence: US)
  Receive Date: 20180307
  Receipt Date: 20180815
  Transmission Date: 20181010
  Serious: Yes (Hospitalization)
  Sender: FDA-Public Use
  Company Number: US-PFIZER INC-2017011670

PATIENT
  Age: 10 Year
  Sex: Male
  Weight: 39.2 kg

DRUGS (7)
  1. GENOTROPIN [Suspect]
     Active Substance: SOMATROPIN
     Dosage: 1.8 MG, 1X/DAY (AT NIGHT)
     Dates: start: 201807
  2. GENOTROPIN [Suspect]
     Active Substance: SOMATROPIN
     Dosage: UNK
  3. GENOTROPIN [Suspect]
     Active Substance: SOMATROPIN
     Dosage: UNK
  4. GENOTROPIN [Suspect]
     Active Substance: SOMATROPIN
     Indication: PRADER-WILLI SYNDROME
     Dosage: 1.6 MG, DAILY
     Dates: start: 200704
  5. GENOTROPIN [Suspect]
     Active Substance: SOMATROPIN
     Dosage: UNK
  6. GENOTROPIN [Suspect]
     Active Substance: SOMATROPIN
     Dosage: 1.6 MG, UNK
  7. GENOTROPIN [Suspect]
     Active Substance: SOMATROPIN
     Dosage: 1.8 MG, 1X/DAY (AT NIGHT)
     Dates: start: 2007

REACTIONS (4)
  - Drug dose omission [Not Recovered/Not Resolved]
  - Ileus [Unknown]
  - Incorrect dose administered [Unknown]
  - Device issue [Unknown]

NARRATIVE: CASE EVENT DATE: 20180807
